FAERS Safety Report 20198465 (Version 1)
Quarter: 2021Q4

REPORT INFORMATION
  Report Type: Spontaneous
  Country: US (occurrence: US)
  Receive Date: 20211217
  Receipt Date: 20211217
  Transmission Date: 20220303
  Serious: Yes (Other)
  Sender: FDA-Public Use
  Company Number: US-GSKCCFUS-Case-01243298_AE-72839

PATIENT
  Age: 80 Year
  Sex: Female

DRUGS (1)
  1. BREO ELLIPTA [Suspect]
     Active Substance: FLUTICASONE FUROATE\VILANTEROL TRIFENATATE
     Indication: Product used for unknown indication
     Dosage: 100 ?G, 1D
     Dates: start: 20211211

REACTIONS (1)
  - Gastrointestinal organ contusion [Not Recovered/Not Resolved]

NARRATIVE: CASE EVENT DATE: 20211212
